FAERS Safety Report 7900372-7 (Version None)
Quarter: 2011Q4

REPORT INFORMATION
  Report Type: 
  Country: None (occurrence: None)
  Receive Date: 20111108
  Receipt Date: 20111101
  Transmission Date: 20120403
  Serious: No
  Sender: FDA-Public Use
  Company Number: US-PFIZER INC-2011268320

PATIENT
  Sex: Female
  Weight: 59.864 kg

DRUGS (2)
  1. SUTENT [Suspect]
     Indication: THYROID CANCER
     Dosage: 25 MG, TAKE 1 CAPSULE, TWICE A DAY
     Route: 048
     Dates: start: 20100601
  2. SUTENT [Suspect]
     Indication: METASTASES TO BONE

REACTIONS (4)
  - NAUSEA [None]
  - VOMITING [None]
  - MIGRAINE [None]
  - HAIR COLOUR CHANGES [None]
